FAERS Safety Report 4875592-9 (Version None)
Quarter: 2006Q1

REPORT INFORMATION
  Report Type: 
  Country: None (occurrence: None)
  Receive Date: 20060109
  Receipt Date: 20051227
  Transmission Date: 20060701
  Serious: Yes (Other)
  Sender: FDA-Public Use
  Company Number: ES-ROCHE-430110

PATIENT
  Age: 51 Year
  Sex: Male

DRUGS (1)
  1. RIVOTRIL [Suspect]
     Route: 048

REACTIONS (1)
  - ILL-DEFINED DISORDER [None]
